FAERS Safety Report 19426973 (Version 1)
Quarter: 2021Q2

REPORT INFORMATION
  Report Type: Spontaneous
  Country: FR (occurrence: FR)
  Receive Date: 20210616
  Receipt Date: 20210616
  Transmission Date: 20210717
  Serious: Yes (Life-Threatening)
  Sender: FDA-Public Use
  Company Number: NVSC2021FR134073

PATIENT
  Age: 36 Year
  Sex: Male

DRUGS (4)
  1. TRACRIUM [Suspect]
     Active Substance: ATRACURIUM BESYLATE
     Indication: ANAESTHESIA
     Dosage: UNK (NON PRECISE)
     Route: 042
     Dates: start: 20210318, end: 20210318
  2. PROPOFOL. [Suspect]
     Active Substance: PROPOFOL
     Indication: ANAESTHESIA
     Dosage: UNK (NON PRECISE)
     Route: 042
     Dates: start: 20210318, end: 20210318
  3. SUFENTANIL [Suspect]
     Active Substance: SUFENTANIL
     Indication: ANAESTHESIA
     Dosage: UNK (NON PRECISE)
     Route: 042
     Dates: start: 20210318, end: 20210318
  4. VANCOMYCIN [Suspect]
     Active Substance: VANCOMYCIN
     Indication: ANAESTHESIA
     Dosage: 2 G
     Route: 042
     Dates: start: 20210318, end: 20210318

REACTIONS (1)
  - Anaphylactic shock [Recovered/Resolved]

NARRATIVE: CASE EVENT DATE: 20210318
